FAERS Safety Report 7996217-X (Version None)
Quarter: 2011Q4

REPORT INFORMATION
  Report Type: 
  Country: None (occurrence: None)
  Receive Date: 20111220
  Receipt Date: 20111212
  Transmission Date: 20120403
  Serious: Yes (Life-Threatening)
  Sender: FDA-Public Use
  Company Number: ES-CELGENEUS-144-50794-11121469

PATIENT
  Age: 66 Year
  Sex: Male

DRUGS (1)
  1. VIDAZA [Suspect]
     Indication: CHRONIC MYELOMONOCYTIC LEUKAEMIA
     Dosage: 75 MILLIGRAM
     Route: 050
     Dates: start: 20110409, end: 20111124

REACTIONS (2)
  - TOXICITY TO VARIOUS AGENTS [None]
  - PNEUMONIA [None]
